FAERS Safety Report 8077790-2 (Version None)
Quarter: 2012Q1

REPORT INFORMATION
  Report Type: 
  Country: None (occurrence: None)
  Receive Date: 20120127
  Receipt Date: 20120123
  Transmission Date: 20120608
  Serious: Yes (Other)
  Sender: FDA-Public Use
  Company Number: US-PFIZER INC-2011294887

PATIENT
  Sex: Female
  Weight: 119.7 kg

DRUGS (4)
  1. GEODON [Suspect]
     Dosage: UNK
  2. CYMBALTA [Concomitant]
     Dosage: UNK
  3. CHANTIX [Suspect]
     Indication: SMOKING CESSATION THERAPY
     Dosage: 0.5 MG, 1X/DAY
     Route: 048
  4. CHANTIX [Suspect]
     Dosage: 0.5 MG, 1X/DAY
     Route: 048
     Dates: start: 20120119

REACTIONS (6)
  - CHRONIC OBSTRUCTIVE PULMONARY DISEASE [None]
  - AGITATION [None]
  - DYSPNOEA [None]
  - DEPRESSION [None]
  - ANXIETY [None]
  - DRUG INEFFECTIVE [None]
